FAERS Safety Report 14620727 (Version 1)
Quarter: 2018Q1

REPORT INFORMATION
  Report Type: Report from Study
  Country: US (occurrence: US)
  Receive Date: 20180309
  Receipt Date: 20180309
  Transmission Date: 20180509
  Serious: Yes (Hospitalization)
  Sender: FDA-Public Use
  Company Number: US-ACTELION-A-NJ2018-168650

PATIENT
  Age: 70 Year
  Sex: Female

DRUGS (1)
  1. OPSUMIT [Suspect]
     Active Substance: MACITENTAN
     Indication: PRODUCT USED FOR UNKNOWN INDICATION
     Dosage: 10 MG, QD
     Route: 048
     Dates: start: 20131118

REACTIONS (5)
  - Atrial fibrillation [Recovering/Resolving]
  - Influenza [Recovered/Resolved]
  - Thrombosis [Not Recovered/Not Resolved]
  - Hypotension [Unknown]
  - Limb injury [Unknown]

NARRATIVE: CASE EVENT DATE: 201802
